FAERS Safety Report 10812863 (Version 1)
Quarter: 2015Q1

REPORT INFORMATION
  Report Type: Report from Study
  Country: US (occurrence: US)
  Receive Date: 20150218
  Receipt Date: 20150218
  Transmission Date: 20150721
  Serious: No
  Sender: FDA-Public Use
  Company Number: US-ABBVIE-14K-163-1274788-00

PATIENT
  Age: 38 Year
  Sex: Male

DRUGS (7)
  1. OXYCODONE [Concomitant]
     Active Substance: OXYCODONE
     Indication: NEURALGIA
     Dosage: FOUR IN ONE DAY
  2. HUMIRA [Suspect]
     Active Substance: ADALIMUMAB
     Dates: start: 20140813
  3. GABAPENTIN. [Concomitant]
     Active Substance: GABAPENTIN
     Indication: PRODUCT USED FOR UNKNOWN INDICATION
     Dosage: 400 MILLIGRAM IN MORNING, 400 MILLIGRAM IN AFTERNOON, 800 MILLLIGRAM AT BEDTIME
  4. HUMIRA [Suspect]
     Active Substance: ADALIMUMAB
     Indication: ANKYLOSING SPONDYLITIS
     Dates: start: 20140716
  5. OXYCODONE [Concomitant]
     Active Substance: OXYCODONE
     Indication: BACK PAIN
  6. SOMA [Concomitant]
     Active Substance: CARISOPRODOL
     Indication: MUSCLE RELAXANT THERAPY
     Dosage: FOUR IN ONE DAY
  7. MIRTAZAPINE. [Concomitant]
     Active Substance: MIRTAZAPINE
     Indication: INSOMNIA

REACTIONS (1)
  - Injection site pain [Recovered/Resolved]

NARRATIVE: CASE EVENT DATE: 20140813
